FAERS Safety Report 5853972-2 (Version None)
Quarter: 2008Q3

REPORT INFORMATION
  Report Type: 
  Country: None (occurrence: None)
  Receive Date: 20080822
  Receipt Date: 20080812
  Transmission Date: 20090109
  Serious: Yes (Hospitalization)
  Sender: FDA-Public Use
  Company Number: FR-JNJFOC-20080802386

PATIENT
  Sex: Female

DRUGS (4)
  1. RISPERDAL [Suspect]
     Route: 048
     Dates: start: 20071203, end: 20071228
  2. RISPERDAL [Suspect]
     Indication: PSYCHOTIC DISORDER
     Route: 048
     Dates: start: 20071203, end: 20071228
  3. RISPERDAL CONSTA [Suspect]
     Indication: PSYCHOTIC DISORDER
     Route: 030
  4. TERCIAN [Suspect]
     Indication: PSYCHOTIC DISORDER
     Dosage: 50 DROPS A DAY (10-10-30)
     Route: 048

REACTIONS (1)
  - HEPATITIS CHOLESTATIC [None]
